FAERS Safety Report 5924594-X (Version None)
Quarter: 2008Q3

REPORT INFORMATION
  Report Type: 
  Country: None (occurrence: None)
  Receive Date: 20080909
  Receipt Date: 20080222
  Transmission Date: 20090109
  Serious: Yes (Other)
  Sender: FDA-Public Use
  Company Number: 163-20785-08021359

PATIENT
  Age: 42 Year
  Sex: Female

DRUGS (2)
  1. THALOMID [Suspect]
     Indication: NEUROENDOCRINE TUMOUR
     Dosage: 100MG - 400MG, ORAL
     Route: 048
  2. TEMOZOLOMIDE [Suspect]
     Indication: NEUROENDOCRINE TUMOUR
     Dosage: 150 MG/M2, DAILY EVERY OTHER WEEK

REACTIONS (1)
  - PNEUMOCYSTIS JIROVECI PNEUMONIA [None]
